FAERS Safety Report 18499218 (Version 1)
Quarter: 2020Q4

REPORT INFORMATION
  Report Type: Spontaneous
  Country: PT (occurrence: PT)
  Receive Date: 20201113
  Receipt Date: 20201113
  Transmission Date: 20210114
  Serious: Yes (Hospitalization, Other)
  Sender: FDA-Public Use
  Company Number: PT-AUROBINDO-AUR-APL-2020-052117

PATIENT
  Age: 61 Year
  Sex: Male

DRUGS (1)
  1. RISPERIDONE. [Suspect]
     Active Substance: RISPERIDONE
     Indication: MAJOR DEPRESSION
     Dosage: UNK
     Route: 065

REACTIONS (11)
  - Portal vein thrombosis [Unknown]
  - Dyskinesia [Unknown]
  - Portal hypertension [Unknown]
  - Splenomegaly [Unknown]
  - Asthenia [Unknown]
  - Abdominal pain [Unknown]
  - Thrombocytopenia [Unknown]
  - Transaminases increased [Unknown]
  - Portal vein cavernous transformation [Unknown]
  - Ascites [Unknown]
  - Cytomegalovirus test positive [Unknown]
